FAERS Safety Report 21562039 (Version 1)
Quarter: 2022Q4

REPORT INFORMATION
  Report Type: Spontaneous
  Country: US (occurrence: None)
  Receive Date: 20221105
  Receipt Date: 20221105
  Transmission Date: 20230113
  Serious: Yes (Other)
  Sender: FDA-Public Use
  Company Number: None

PATIENT
  Age: 6 Year
  Sex: Male
  Weight: 21.6 kg

DRUGS (2)
  1. OXYCODONE [Suspect]
     Active Substance: OXYCODONE
     Indication: Cough
     Dates: start: 20221104, end: 20221105
  2. KIDS MULTI [Concomitant]

REACTIONS (1)
  - Product commingling [None]

NARRATIVE: CASE EVENT DATE: 20221105
